FAERS Safety Report 5899600-1 (Version None)
Quarter: 2008Q3

REPORT INFORMATION
  Report Type: 
  Country: None (occurrence: None)
  Receive Date: 20080926
  Receipt Date: 20080924
  Transmission Date: 20090109
  Serious: Yes (Death)
  Sender: FDA-Public Use
  Company Number: PHEH2008US08550

PATIENT
  Sex: Male

DRUGS (1)
  1. LESCOL XL [Suspect]
     Dosage: 80 MG, QD
     Route: 048

REACTIONS (3)
  - HEART TRANSPLANT [None]
  - HEART TRANSPLANT REJECTION [None]
  - VENTRICULAR ASSIST DEVICE INSERTION [None]
